FAERS Safety Report 10443900 (Version 1)
Quarter: 2014Q3

REPORT INFORMATION
  Report Type: Spontaneous
  Country: US (occurrence: US)
  Receive Date: 20140910
  Receipt Date: 20140910
  Transmission Date: 20150326
  Serious: No
  Sender: FDA-Public Use
  Company Number: US-TARO-2013P1015251

PATIENT
  Age: 43 Year
  Sex: Female
  Weight: 127.01 kg

DRUGS (8)
  1. WARFARIN [Suspect]
     Active Substance: WARFARIN
     Dates: start: 201307
  2. ROZEREM [Concomitant]
     Active Substance: RAMELTEON
  3. ENOXAPARIN (SANDOZ) [Suspect]
     Active Substance: ENOXAPARIN
     Route: 058
     Dates: start: 201307, end: 20130724
  4. WELLBUTRIN [Concomitant]
     Active Substance: BUPROPION HYDROCHLORIDE
  5. MIRAPEX [Concomitant]
     Active Substance: PRAMIPEXOLE DIHYDROCHLORIDE
  6. VISTARIL [Concomitant]
     Active Substance: HYDROXYZINE PAMOATE
  7. TRILEPTAL [Concomitant]
     Active Substance: OXCARBAZEPINE
  8. REMERON [Concomitant]
     Active Substance: MIRTAZAPINE

REACTIONS (2)
  - Somnolence [Not Recovered/Not Resolved]
  - Injection site bruising [Recovering/Resolving]

NARRATIVE: CASE EVENT DATE: 201307
